FAERS Safety Report 7153010-8 (Version None)
Quarter: 2010Q4

REPORT INFORMATION
  Report Type: 
  Country: None (occurrence: None)
  Receive Date: 20101209
  Receipt Date: 20101209
  Transmission Date: 20110411
  Serious: Yes (Death, Life-Threatening, Other)
  Sender: FDA-Public Use
  Company Number: None

PATIENT
  Sex: Male
  Weight: 97.7 kg

DRUGS (10)
  1. LYRICA [Suspect]
     Indication: NEUROPATHY PERIPHERAL
     Dosage: 600 MG/DAY (200 MG 3X OR 300 MG 2X) ORAL 47
     Route: 048
     Dates: start: 20080901, end: 20081001
  2. ACCUPRIL [Concomitant]
  3. GLUCOTROL [Concomitant]
  4. ACTOS [Concomitant]
  5. LIPITOR [Concomitant]
  6. ZOCOR [Concomitant]
  7. MAXZIDE [Concomitant]
  8. TRIAMTERENE [Concomitant]
  9. ASPIRIN [Concomitant]
  10. BYETTA [Concomitant]

REACTIONS (4)
  - ALTERED VISUAL DEPTH PERCEPTION [None]
  - MOOD ALTERED [None]
  - MYALGIA [None]
  - NEUROPATHY PERIPHERAL [None]
